FAERS Safety Report 8524068-6 (Version None)
Quarter: 2012Q3

REPORT INFORMATION
  Report Type: 
  Country: None (occurrence: None)
  Receive Date: 20120720
  Receipt Date: 20120709
  Transmission Date: 20120928
  Serious: Yes (Other)
  Sender: FDA-Public Use
  Company Number: US-ASTRAZENECA-2012SE27863

PATIENT
  Age: 49 Year
  Sex: Male

DRUGS (4)
  1. SYMBICORT [Suspect]
     Dosage: 2 PUFF, TWICE DAILY
     Route: 055
  2. NEXIUM [Suspect]
     Route: 048
  3. NEXIUM [Suspect]
     Route: 048
  4. SYMBICORT [Suspect]
     Dosage: 1 PUFF, TWICE DAILY
     Route: 055

REACTIONS (2)
  - DIARRHOEA [None]
  - PULMONARY FUNCTION TEST DECREASED [None]
